FAERS Safety Report 9486075 (Version 6)
Quarter: 2014Q2

REPORT INFORMATION
  Report Type: Spontaneous
  Country: US (occurrence: US)
  Receive Date: 20130829
  Receipt Date: 20140609
  Transmission Date: 20141212
  Serious: No
  Sender: FDA-Public Use
  Company Number: US-009507513-1308USA012245

PATIENT
  Sex: Male

DRUGS (4)
  1. PROPECIA [Suspect]
     Indication: ALOPECIA
     Dosage: 1 MG, UNK
     Route: 048
     Dates: start: 1998
  2. PROPECIA [Suspect]
     Dosage: 1 MG, UNK
     Route: 048
     Dates: start: 20000920, end: 20041011
  3. FINASTERIDE [Suspect]
     Dosage: 1 MG, UNK
     Route: 048
     Dates: start: 1998
  4. FINASTERIDE [Suspect]
     Indication: ALOPECIA
     Dosage: 1/4 TABLET DAILY
     Route: 048
     Dates: start: 20120117

REACTIONS (11)
  - Anxiety [Unknown]
  - Eyelid operation [Unknown]
  - Wrong technique in drug usage process [Unknown]
  - Psychological factor affecting medical condition [Unknown]
  - Vasectomy [Unknown]
  - Keratomileusis [Unknown]
  - Depression [Unknown]
  - Erectile dysfunction [Not Recovered/Not Resolved]
  - Sexual dysfunction [Not Recovered/Not Resolved]
  - Libido decreased [Not Recovered/Not Resolved]
  - Drug administration error [Unknown]
